FAERS Safety Report 7157147-9 (Version None)
Quarter: 2010Q4

REPORT INFORMATION
  Report Type: 
  Country: None (occurrence: None)
  Receive Date: 20101214
  Receipt Date: 20091214
  Transmission Date: 20110411
  Serious: No
  Sender: FDA-Public Use
  Company Number: US-ASTRAZENECA-2009SE32249

PATIENT
  Age: 66 Year
  Sex: Female

DRUGS (4)
  1. CRESTOR [Suspect]
     Indication: BLOOD CHOLESTEROL
     Route: 048
     Dates: start: 20060101
  2. ALBUTEROL [Concomitant]
  3. EVOXAC [Concomitant]
  4. METHOTREXATE [Concomitant]

REACTIONS (1)
  - WEIGHT INCREASED [None]
